FAERS Safety Report 25277177 (Version 1)
Quarter: 2025Q2

REPORT INFORMATION
  Report Type: Spontaneous
  Country: DE (occurrence: DE)
  Receive Date: 20250507
  Receipt Date: 20250507
  Transmission Date: 20250717
  Serious: Yes (Other)
  Sender: ALIMERA
  Company Number: DE-ALIMERA SCIENCES INC.-DE-A16013-25-000143

PATIENT
  Age: 60 Year
  Sex: Female

DRUGS (2)
  1. ILUVIEN [Suspect]
     Active Substance: FLUOCINOLONE ACETONIDE
     Indication: Uveitis
     Dosage: 0.25 MICROGRAM, QD-RIGHT EYE
     Route: 031
     Dates: start: 20140410
  2. ILUVIEN [Suspect]
     Active Substance: FLUOCINOLONE ACETONIDE
     Indication: Birdshot chorioretinopathy
     Dosage: 0.25 MICROGRAM, QD-LEFT EYE
     Route: 031
     Dates: start: 20140515

REACTIONS (2)
  - Retinal thickening [Unknown]
  - Intraocular pressure increased [Unknown]
